FAERS Safety Report 5875686-5 (Version None)
Quarter: 2008Q3

REPORT INFORMATION
  Report Type: 
  Country: None (occurrence: None)
  Receive Date: 20080909
  Receipt Date: 20080902
  Transmission Date: 20090109
  Serious: Yes (Hospitalization, Disabling)
  Sender: FDA-Public Use
  Company Number: US-GENENTECH-264424

PATIENT
  Sex: Male
  Weight: 106.36 kg

DRUGS (2)
  1. OMALIZUMAB [Suspect]
     Indication: ASTHMA
     Dosage: UNK
     Route: 058
     Dates: start: 20040915
  2. INHALER (TYPE UNKNOWN) [Concomitant]
     Indication: ASTHMA

REACTIONS (1)
  - LUNG NEOPLASM MALIGNANT [None]
